FAERS Safety Report 23370936 (Version 1)
Quarter: 2024Q1

REPORT INFORMATION
  Report Type: Spontaneous
  Country: CN (occurrence: CN)
  Receive Date: 20240105
  Receipt Date: 20240105
  Transmission Date: 20240409
  Serious: Yes (Other)
  Sender: FDA-Public Use
  Company Number: CN-SA-SAC20240103000649

PATIENT
  Age: 86 Year
  Sex: Male
  Weight: 49 kg

DRUGS (1)
  1. ENOXAPARIN SODIUM [Suspect]
     Active Substance: ENOXAPARIN SODIUM
     Indication: Urethral stenosis
     Dosage: UNK UNK, Q12H (0.66 VIAL)
     Route: 058
     Dates: start: 20231218, end: 20231219

REACTIONS (1)
  - Hepatitis [Recovering/Resolving]
